FAERS Safety Report 12777262 (Version 1)
Quarter: 2016Q3

REPORT INFORMATION
  Report Type: Spontaneous
  Country: BR (occurrence: BR)
  Receive Date: 20160924
  Receipt Date: 20160924
  Transmission Date: 20161109
  Serious: Yes (Other)
  Sender: FDA-Public Use
  Company Number: BR-ACCORD-044142

PATIENT
  Age: 36 Year
  Sex: Male

DRUGS (7)
  1. DOXORUBICIN/DOXORUBICIN HYDROCHLORIDE [Suspect]
     Active Substance: DOXORUBICIN HYDROCHLORIDE
     Indication: INTRAVASCULAR PAPILLARY ENDOTHELIAL HYPERPLASIA
     Dosage: Q21 DAYS, 3 CYCLES
     Dates: start: 2015
  2. GEMCITABINE/GEMCITABINE HYDROCHLORIDE [Suspect]
     Active Substance: GEMCITABINE\GEMCITABINE HYDROCHLORIDE
     Indication: INTRAVASCULAR PAPILLARY ENDOTHELIAL HYPERPLASIA
     Dosage: 1 CYCLE
     Dates: start: 201307
  3. DOCETAXEL. [Suspect]
     Active Substance: DOCETAXEL
     Indication: INTRAVASCULAR PAPILLARY ENDOTHELIAL HYPERPLASIA
     Dates: start: 201307
  4. IFOSFAMIDE. [Suspect]
     Active Substance: IFOSFAMIDE
     Indication: INTRAVASCULAR PAPILLARY ENDOTHELIAL HYPERPLASIA
     Dosage: DIVIDED IN 5 DOSES Q21 DAYS; 3 CYCLES
     Dates: start: 2015
  5. PREDNISONE/PREDNISONE ACETATE [Suspect]
     Active Substance: PREDNISONE ACETATE
     Indication: INTRAVASCULAR PAPILLARY ENDOTHELIAL HYPERPLASIA
     Route: 048
     Dates: start: 2014
  6. INTERFERON ALFA NOS [Suspect]
     Active Substance: INTERFERON ALFA-2A OR INTERFERON ALFA-2B
     Indication: INTRAVASCULAR PAPILLARY ENDOTHELIAL HYPERPLASIA
     Dates: start: 2015
  7. PACLITAXEL/PACLITAXEL LIPOSOME [Concomitant]
     Active Substance: PACLITAXEL
     Indication: INTRAVASCULAR PAPILLARY ENDOTHELIAL HYPERPLASIA
     Dosage: WEEKLY; 8 CYCLES
     Dates: start: 2014, end: 201410

REACTIONS (11)
  - Haematotoxicity [Unknown]
  - Gastrointestinal haemorrhage [None]
  - Off label use [Unknown]
  - Hypofibrinogenaemia [None]
  - Petechiae [None]
  - Drug ineffective for unapproved indication [None]
  - Drug ineffective [Unknown]
  - Angiosarcoma [None]
  - Malignant neoplasm progression [None]
  - Thrombocytopenia [None]
  - Epistaxis [None]
